FAERS Safety Report 20480713 (Version 3)
Quarter: 2022Q1

REPORT INFORMATION
  Report Type: Report from Study
  Country: AR (occurrence: AR)
  Receive Date: 20220216
  Receipt Date: 20220320
  Transmission Date: 20220423
  Serious: Yes (Hospitalization, Other)
  Sender: FDA-Public Use
  Company Number: AR-NOVARTISPH-NVSC2022AR035093

PATIENT
  Age: 60 Year
  Sex: Female

DRUGS (2)
  1. METFORMIN HYDROCHLORIDE\VILDAGLIPTIN [Suspect]
     Active Substance: METFORMIN HYDROCHLORIDE\VILDAGLIPTIN
     Indication: Diabetes mellitus management
     Dosage: UNK (50/850)
     Route: 065
     Dates: start: 20211104
  2. RIBOCICLIB [Concomitant]
     Active Substance: RIBOCICLIB
     Indication: Breast cancer metastatic
     Dosage: 600 MG/KG, QD
     Route: 048
     Dates: start: 20211224

REACTIONS (6)
  - Pulmonary oedema [Unknown]
  - Lymphadenopathy [Unknown]
  - Pulmonary mass [Unknown]
  - Bone lesion [Unknown]
  - Pleural effusion [Unknown]
  - Cough [Unknown]

NARRATIVE: CASE EVENT DATE: 20211104
